FAERS Safety Report 8035897-X (Version None)
Quarter: 2012Q1

REPORT INFORMATION
  Report Type: 
  Country: None (occurrence: None)
  Receive Date: 20120111
  Receipt Date: 20120111
  Transmission Date: 20120608
  Serious: Yes (Death)
  Sender: FDA-Public Use
  Company Number: None

PATIENT
  Age: 56 Year
  Sex: Male
  Weight: 82.1 kg

DRUGS (4)
  1. ABILIFY [Suspect]
     Indication: PSYCHOTIC DISORDER
     Dosage: 2 MG
     Route: 048
     Dates: start: 20111102, end: 20111108
  2. ABILIFY [Suspect]
     Indication: MAJOR DEPRESSION
     Dosage: 2 MG
     Route: 048
     Dates: start: 20111102, end: 20111108
  3. SERTRALINE HYDROCHLORIDE [Concomitant]
     Indication: GENERALISED ANXIETY DISORDER
     Dosage: 50 MG
     Route: 048
     Dates: start: 20110915, end: 20111107
  4. SERTRALINE HYDROCHLORIDE [Concomitant]
     Indication: MAJOR DEPRESSION
     Dosage: 50 MG
     Route: 048
     Dates: start: 20110915, end: 20111107

REACTIONS (3)
  - NO THERAPEUTIC RESPONSE [None]
  - GUN SHOT WOUND [None]
  - COMPLETED SUICIDE [None]
